FAERS Safety Report 6570260-X (Version None)
Quarter: 2010Q1

REPORT INFORMATION
  Report Type: 
  Country: None (occurrence: None)
  Receive Date: 20100204
  Receipt Date: 20100126
  Transmission Date: 20100710
  Serious: Yes (Hospitalization, Disabling, Other)
  Sender: FDA-Public Use
  Company Number: US-PFIZER INC-2010011200

PATIENT
  Sex: Male
  Weight: 56.689 kg

DRUGS (3)
  1. VIAGRA [Suspect]
     Indication: ERECTILE DYSFUNCTION
     Dosage: UNK
     Route: 048
     Dates: start: 20090101, end: 20090101
  2. ATENOLOL [Concomitant]
     Indication: HYPERTENSION
     Dosage: UNK
     Route: 048
  3. ACETYLSALICYLIC ACID [Concomitant]
     Indication: HYPERTENSION
     Dosage: 81 MG, 1X/DAY
     Route: 048
     Dates: start: 20020101

REACTIONS (6)
  - CEREBROVASCULAR ACCIDENT [None]
  - DEAFNESS [None]
  - HEMIPLEGIA [None]
  - MEDICATION ERROR [None]
  - TUNNEL VISION [None]
  - WEIGHT INCREASED [None]
